FAERS Safety Report 9170494 (Version 1)
Quarter: 2013Q1

REPORT INFORMATION
  Report Type: Spontaneous
  Country: US (occurrence: None)
  Receive Date: 20130315
  Receipt Date: 20130315
  Transmission Date: 20140127
  Serious: Yes (Hospitalization)
  Sender: FDA-Public Use
  Company Number: None

PATIENT
  Age: 35 Year
  Sex: 0
  Weight: 95.9 kg

DRUGS (1)
  1. OXYTOCIN [Suspect]
     Dosage: 20 UNITS IN LR 1000M3, X1, IV BOLUS
     Route: 040
     Dates: start: 20130110, end: 20130110

REACTIONS (2)
  - Drug ineffective [None]
  - Packed red blood cell transfusion [None]
